FAERS Safety Report 5740200-1 (Version None)
Quarter: 2008Q2

REPORT INFORMATION
  Report Type: 
  Country: None (occurrence: None)
  Receive Date: 20080516
  Receipt Date: 20080508
  Transmission Date: 20081010
  Serious: No
  Sender: FDA-Public Use
  Company Number: JP-BAXTER-2008BH004553

PATIENT
  Sex: Male
  Weight: 50 kg

DRUGS (5)
  1. FEIBA VH IMMUNO [Suspect]
     Indication: FACTOR VIII INHIBITION
     Route: 042
     Dates: start: 20080421, end: 20080424
  2. FEIBA VH IMMUNO [Suspect]
     Route: 042
     Dates: start: 20080425, end: 20080425
  3. STEROID [Suspect]
     Indication: FACTOR VIII INHIBITION
     Dosage: DOSE UNIT:UNKNOWN
     Route: 065
  4. ANTIBIOTIC [Suspect]
     Indication: INFECTION PROPHYLAXIS
     Dosage: DOSE UNIT:UNKNOWN
     Route: 065
  5. NOVOSEVEN [Concomitant]
     Indication: FACTOR VIII INHIBITION
     Dosage: DOSE UNIT:UNKNOWN
     Route: 042
     Dates: start: 20080419, end: 20080420

REACTIONS (2)
  - ALANINE AMINOTRANSFERASE INCREASED [None]
  - ASPARTATE AMINOTRANSFERASE INCREASED [None]
